FAERS Safety Report 8758011 (Version 2)
Quarter: 2012Q4

REPORT INFORMATION
  Report Type: 
  Country: US (occurrence: US)
  Receive Date: 20120828
  Receipt Date: 20121001
  Transmission Date: 20130627
  Serious: Yes (Other)
  Sender: FDA-Public Use
  Company Number: US-PFIZER INC-2012206298

PATIENT
  Age: 27 Year
  Sex: Male
  Weight: 54 kg

DRUGS (11)
  1. CALTRATE [Suspect]
     Indication: BONE DISORDER
     Dosage: UNK, daily
     Dates: start: 2000
  2. LYRICA [Suspect]
     Indication: HYPERTENSIVE CRISIS
     Dosage: 175 mg, daily
     Dates: start: 2006
  3. LYRICA [Suspect]
     Dosage: 25 mg, daily
  4. ZOLOFT [Suspect]
     Indication: HYPERTENSIVE CRISIS
     Dosage: 25 mg, daily
     Dates: start: 20120813
  5. ZOLOFT [Suspect]
     Indication: POST-TRAUMATIC STRESS DISORDER
     Dosage: 37.5 mg, daily
     Dates: start: 20120820
  6. ZOLOFT [Suspect]
     Indication: ANXIETY
  7. ZOLOFT [Suspect]
     Indication: DEPRESSION
  8. CATAPRES [Concomitant]
     Indication: HYPERTENSION
     Dosage: 0.1 mg, 2x/day
     Dates: start: 1991
  9. FLORINEF [Concomitant]
     Indication: HYPERTENSION
     Dosage: 0.1 mg, daily
     Dates: start: 1991
  10. CARBIDOPA [Concomitant]
     Indication: FAMILIAL RISK FACTOR
     Dosage: 250 mg, 3x/day
     Dates: start: 2010
  11. MIRALAX [Concomitant]
     Indication: CONSTIPATION
     Dosage: UNK

REACTIONS (5)
  - Spinal operation [Unknown]
  - Abdominal pain upper [Unknown]
  - Constipation [Unknown]
  - Abdominal pain [Unknown]
  - Off label use [Unknown]
